FAERS Safety Report 9894913 (Version 1)
Quarter: 2014Q1

REPORT INFORMATION
  Report Type: Spontaneous
  Country: US (occurrence: US)
  Receive Date: 20140213
  Receipt Date: 20140213
  Transmission Date: 20141002
  Serious: No
  Sender: FDA-Public Use
  Company Number: US-SA-2014SA001639

PATIENT
  Age: 60 Year
  Sex: Female

DRUGS (17)
  1. KYNAMRO [Suspect]
     Indication: TYPE IIA HYPERLIPIDAEMIA
     Route: 065
     Dates: start: 20140103
  2. ALPRAZOLAM [Concomitant]
     Indication: INSOMNIA
     Dosage: 1 TABLET AT BEDTIME
     Route: 048
     Dates: start: 20120424
  3. ALPRAZOLAM [Concomitant]
     Indication: ANXIETY
     Dosage: 1 TABLET AT BEDTIME
     Route: 048
     Dates: start: 20120424
  4. AMITRIPTYLINE [Concomitant]
     Route: 048
  5. ASPIRIN [Concomitant]
     Dosage: 1 TABLET
     Route: 048
     Dates: start: 20101022
  6. CARVEDILOL [Concomitant]
     Dosage: 1 TABLET
     Route: 048
     Dates: start: 20130423
  7. CITALOPRAM HYDROBROMIDE [Concomitant]
     Dosage: 1 TABLET
     Route: 048
     Dates: start: 20120424
  8. FISH OIL [Concomitant]
     Dosage: 2 CAPSULES
     Route: 048
     Dates: start: 20131114
  9. FUROSEMIDE [Concomitant]
     Dosage: 1 TABLET
     Route: 048
     Dates: start: 20101022
  10. GLIPIZIDE [Concomitant]
     Route: 048
     Dates: start: 20120921
  11. LOSARTAN POTASSIUM [Concomitant]
     Route: 048
     Dates: start: 20120413
  12. NIASPAN [Concomitant]
     Dosage: 2 TABLET AT BEDTIME
     Route: 048
     Dates: start: 20120413
  13. NITROSTAT [Concomitant]
     Indication: CHEST PAIN
     Route: 060
     Dates: start: 20101022
  14. PRAVASTATIN SODIUM [Concomitant]
     Dosage: 1 TABLET AT BEDTIME
     Route: 048
     Dates: start: 20131009
  15. VITAMIN D [Concomitant]
     Dosage: DOSE:2000 UNIT(S)
     Route: 048
     Dates: start: 20131002
  16. WELCHOL [Concomitant]
     Dosage: 1 PACKET
     Route: 048
     Dates: start: 20130820
  17. ZETIA [Concomitant]
     Dosage: 1 TABLET
     Route: 048
     Dates: start: 20130226

REACTIONS (3)
  - Burning sensation [Recovered/Resolved]
  - Pain [Recovered/Resolved]
  - Dizziness [Recovered/Resolved]
